FAERS Safety Report 14682377 (Version 1)
Quarter: 2018Q1

REPORT INFORMATION
  Report Type: Spontaneous
  Country: FR (occurrence: FR)
  Receive Date: 20180326
  Receipt Date: 20180326
  Transmission Date: 20180509
  Serious: Yes (Other)
  Sender: FDA-Public Use
  Company Number: FR-MERCK KGAA-2044571

PATIENT
  Age: 30 Year
  Sex: Female
  Weight: 52 kg

DRUGS (1)
  1. NOVOTHYROX [Suspect]
     Active Substance: LEVOTHYROXINE SODIUM
     Indication: HYPOTHYROIDISM

REACTIONS (23)
  - Urinary tract infection [None]
  - Fatigue [None]
  - Diarrhoea [Not Recovered/Not Resolved]
  - Loss of personal independence in daily activities [None]
  - Social avoidant behaviour [None]
  - Quality of life decreased [None]
  - General physical health deterioration [None]
  - Bradycardia [Not Recovered/Not Resolved]
  - Muscle spasms [Not Recovered/Not Resolved]
  - Insomnia [Not Recovered/Not Resolved]
  - Depressed mood [None]
  - Libido decreased [None]
  - Decreased interest [None]
  - Irritability [Not Recovered/Not Resolved]
  - Gastrointestinal disorder [Not Recovered/Not Resolved]
  - Depression [None]
  - Disturbance in attention [Not Recovered/Not Resolved]
  - Impaired driving ability [None]
  - Menstrual disorder [None]
  - Weight decreased [Not Recovered/Not Resolved]
  - Blood thyroid stimulating hormone increased [Not Recovered/Not Resolved]
  - Extrasystoles [None]
  - Personal relationship issue [None]

NARRATIVE: CASE EVENT DATE: 201709
